FAERS Safety Report 12922713 (Version 1)
Quarter: 2016Q4

REPORT INFORMATION
  Report Type: Spontaneous
  Country: US (occurrence: US)
  Receive Date: 20161108
  Receipt Date: 20161108
  Transmission Date: 20170207
  Serious: Yes (Other)
  Sender: FDA-Public Use
  Company Number: None

PATIENT
  Age: 75 Year
  Sex: Female
  Weight: 54 kg

DRUGS (8)
  1. CALCIUM CITRATE [Concomitant]
     Active Substance: CALCIUM CITRATE
  2. LATANOPROST OPHTHALMIC SOLUTION [Concomitant]
     Active Substance: LATANOPROST
  3. VITAMIN D3 [Concomitant]
     Active Substance: CHOLECALCIFEROL
  4. VITAMIN C [Concomitant]
     Active Substance: ASCORBIC ACID
  5. VITAMIN E [Concomitant]
     Active Substance: .ALPHA.-TOCOPHEROL
  6. FLUTICASONE PROPIONATE NASAL SPR [Suspect]
     Active Substance: FLUTICASONE PROPIONATE
     Indication: NASAL CONGESTION
     Dosage: ?          OTHER STRENGTH:MCG;QUANTITY:32 SPRAY(S);OTHER ROUTE:NASAL SPRAY?
  7. DORZOLAMIDE HCL/TIMOLOL MALEATE OPHTHALMIC SOLUTION, USP [Concomitant]
  8. CITRUCEL (METHYLCELLULOSE FIBER) [Concomitant]

REACTIONS (2)
  - Parosmia [None]
  - Dysgeusia [None]

NARRATIVE: CASE EVENT DATE: 20161003
